FAERS Safety Report 4994904-9 (Version None)
Quarter: 2006Q2

REPORT INFORMATION
  Report Type: 
  Country: None (occurrence: None)
  Receive Date: 20060508
  Receipt Date: 20060426
  Transmission Date: 20061013
  Serious: Yes (Other)
  Sender: FDA-Public Use
  Company Number: PHBS2006JP06347

PATIENT
  Sex: Female

DRUGS (3)
  1. NEORAL [Suspect]
     Indication: RENAL TRANSPLANT
     Route: 048
  2. IMURAN [Concomitant]
     Indication: RENAL TRANSPLANT
     Route: 048
  3. PREDONINE [Concomitant]
     Indication: RENAL TRANSPLANT
     Route: 048

REACTIONS (3)
  - BENIGN HYDATIDIFORM MOLE [None]
  - CHORIOCARCINOMA [None]
  - DRUG EXPOSURE DURING PREGNANCY [None]
